FAERS Safety Report 15382029 (Version 5)
Quarter: 2020Q1

REPORT INFORMATION
  Report Type: Report from Study
  Country: US (occurrence: US)
  Receive Date: 20180913
  Receipt Date: 20200331
  Transmission Date: 20200409
  Serious: Yes (Hospitalization, Other)
  Sender: FDA-Public Use
  Company Number: US-ASTELLAS-2018US008230

PATIENT
  Age: 88 Year
  Sex: Male

DRUGS (3)
  1. ENZALUTAMIDE [Suspect]
     Active Substance: ENZALUTAMIDE
     Indication: PROSTATE CANCER
     Route: 048
     Dates: start: 20180124
  2. CORTISONE [Suspect]
     Active Substance: CORTISONE
     Indication: ARTHRITIS
     Dosage: UNK UNK, UNKNOWN FREQ.
     Route: 014
  3. ENZALUTAMIDE [Suspect]
     Active Substance: ENZALUTAMIDE
     Route: 048

REACTIONS (11)
  - Pneumonitis [Recovered/Resolved]
  - Fear [Not Recovered/Not Resolved]
  - Anxiety [Unknown]
  - Hypertension [Recovered/Resolved]
  - Pain in extremity [Not Recovered/Not Resolved]
  - Arthritis [Not Recovered/Not Resolved]
  - Hypersomnia [Unknown]
  - Loss of personal independence in daily activities [Not Recovered/Not Resolved]
  - Herpes zoster [Not Recovered/Not Resolved]
  - Fatigue [Recovering/Resolving]
  - Flushing [Recovered/Resolved]

NARRATIVE: CASE EVENT DATE: 20180312
